FAERS Safety Report 16877704 (Version 4)
Quarter: 2020Q1

REPORT INFORMATION
  Report Type: Report from Study
  Country: JP (occurrence: JP)
  Receive Date: 20191002
  Receipt Date: 20200303
  Transmission Date: 20200409
  Serious: Yes (Hospitalization)
  Sender: FDA-Public Use
  Company Number: JP-CELGENEUS-JPN-20190908375

PATIENT
  Age: 34 Year
  Sex: Female
  Weight: 63 kg

DRUGS (6)
  1. DOVOBET OINTMENT [Concomitant]
     Indication: PSORIASIS
     Dosage: 0.75 G
     Route: 061
     Dates: start: 20190710, end: 20191002
  2. HYDROCORTISONE BUTYRATE OINTMENT [Concomitant]
     Indication: PSORIASIS
     Dosage: 0.25 G
     Route: 061
     Dates: start: 20190710, end: 20191002
  3. CC-10004 [Suspect]
     Active Substance: APREMILAST
     Indication: PSORIASIS
     Dosage: 30 MG
     Route: 048
     Dates: start: 20190919, end: 20190923
  4. LOXOPROFEN SODIUM HYDRATE [Concomitant]
     Active Substance: LOXOPROFEN SODIUM DIHYDRATE
     Indication: DYSMENORRHOEA
     Dosage: 60 MG X PRN
     Route: 048
  5. CC-10004 [Suspect]
     Active Substance: APREMILAST
     Dosage: 30 MG X 2 X 1 DAYS
     Route: 048
     Dates: start: 20190919, end: 20190923
  6. DOVOBET GEL [Concomitant]
     Indication: PSORIASIS
     Dosage: 1.0 G
     Route: 061
     Dates: start: 20190814, end: 20191002

REACTIONS (1)
  - Blood creatine phosphokinase increased [Not Recovered/Not Resolved]

NARRATIVE: CASE EVENT DATE: 20190924
